FAERS Safety Report 8384355-1 (Version None)
Quarter: 2012Q2

REPORT INFORMATION
  Report Type: 
  Country: None (occurrence: None)
  Receive Date: 20120524
  Receipt Date: 20120509
  Transmission Date: 20120825
  Serious: Yes (Hospitalization)
  Sender: FDA-Public Use
  Company Number: NL-JNJFOC-20120514820

PATIENT
  Sex: Female
  Weight: 87 kg

DRUGS (2)
  1. DOCETAXEL [Suspect]
     Indication: BREAST CANCER
     Route: 065
     Dates: start: 20120403, end: 20120403
  2. TRAMADOL HYDROCHLORIDE [Suspect]
     Indication: MYALGIA
     Dosage: 3 PER DAY
     Route: 048
     Dates: start: 20120401, end: 20120401

REACTIONS (1)
  - MYOSITIS [None]
